FAERS Safety Report 5202987-6 (Version None)
Quarter: 2006Q4

REPORT INFORMATION
  Report Type: 
  Country: None (occurrence: None)
  Receive Date: 20061016
  Receipt Date: 20060816
  Transmission Date: 20070319
  Serious: No
  Sender: FDA-Public Use
  Company Number: 2006SP003030

PATIENT
  Age: 73 Year
  Sex: Female
  Weight: 74.8435 kg

DRUGS (4)
  1. LUNESTA [Suspect]
     Indication: INSOMNIA
     Dosage: 3 MG; HS; ORAL
     Route: 048
     Dates: start: 20060807, end: 20060810
  2. AVINZA [Concomitant]
  3. VALIUM [Concomitant]
  4. TEMAZEPAM [Concomitant]

REACTIONS (2)
  - INITIAL INSOMNIA [None]
  - POOR QUALITY SLEEP [None]
